FAERS Safety Report 6095147-0 (Version None)
Quarter: 2009Q1

REPORT INFORMATION
  Report Type: 
  Country: None (occurrence: None)
  Receive Date: 20090227
  Receipt Date: 20080130
  Transmission Date: 20090719
  Serious: No
  Sender: FDA-Public Use
  Company Number: A0706372A

PATIENT

DRUGS (3)
  1. LAMICTAL [Suspect]
  2. TRILEPTAL [Concomitant]
  3. UNKNOWN [Concomitant]

REACTIONS (1)
  - BLOOD ALKALINE PHOSPHATASE INCREASED [None]
